FAERS Safety Report 7132118-7 (Version None)
Quarter: 2010Q4

REPORT INFORMATION
  Report Type: 
  Country: None (occurrence: None)
  Receive Date: 20101202
  Receipt Date: 20101123
  Transmission Date: 20110411
  Serious: Yes (Other)
  Sender: FDA-Public Use
  Company Number: IE-ASTRAZENECA-2010SE47358

PATIENT
  Age: 50 Year
  Sex: Male
  Weight: 87.2 kg

DRUGS (4)
  1. ATACAND [Suspect]
     Indication: HYPERTENSION
     Route: 048
     Dates: start: 20090417, end: 20090503
  2. ATACAND [Suspect]
     Route: 048
  3. AMLODIPINE [Concomitant]
  4. ATORVASTATIN CALCIUM [Concomitant]
     Indication: DYSLIPIDAEMIA

REACTIONS (4)
  - CHEST DISCOMFORT [None]
  - DEPRESSED LEVEL OF CONSCIOUSNESS [None]
  - DIZZINESS [None]
  - HYPOTENSION [None]
